FAERS Safety Report 8427464-0 (Version None)
Quarter: 2012Q2

REPORT INFORMATION
  Report Type: 
  Country: None (occurrence: None)
  Receive Date: 20120611
  Receipt Date: 20120608
  Transmission Date: 20120825
  Serious: Yes (Other)
  Sender: FDA-Public Use
  Company Number: US-PFIZER INC-2012123576

PATIENT
  Sex: Female

DRUGS (2)
  1. PREMARIN [Suspect]
     Dosage: UNK
  2. ALDACTONE [Suspect]
     Dosage: UNK
     Dates: start: 19970101

REACTIONS (4)
  - ROAD TRAFFIC ACCIDENT [None]
  - NECK INJURY [None]
  - HEADACHE [None]
  - BACK DISORDER [None]
